FAERS Safety Report 23777245 (Version 1)
Quarter: 2024Q2

REPORT INFORMATION
  Report Type: Spontaneous
  Country: BG (occurrence: BG)
  Receive Date: 20240424
  Receipt Date: 20240424
  Transmission Date: 20240716
  Serious: Yes (Hospitalization, Other)
  Sender: FDA-Public Use
  Company Number: BG-MACLEODS PHARMA-MAC2024046959

PATIENT
  Age: 77 Year
  Sex: Female

DRUGS (2)
  1. VALSARTAN [Suspect]
     Active Substance: VALSARTAN
     Indication: Hypertension
     Route: 065
  2. MOXONIDINE [Suspect]
     Active Substance: MOXONIDINE
     Indication: Hypertension
     Route: 065

REACTIONS (2)
  - Basal cell carcinoma [Unknown]
  - Product contamination [Unknown]
